FAERS Safety Report 8157242-1 (Version None)
Quarter: 2012Q1

REPORT INFORMATION
  Report Type: 
  Country: None (occurrence: None)
  Receive Date: 20120222
  Receipt Date: 20120222
  Transmission Date: 20120608
  Serious: Yes (Other)
  Sender: FDA-Public Use
  Company Number: None

PATIENT
  Age: 38 Year
  Sex: Female
  Weight: 56.699 kg

DRUGS (1)
  1. CYMBALTA [Suspect]

REACTIONS (2)
  - GASTROINTESTINAL DISORDER [None]
  - URINARY INCONTINENCE [None]
